FAERS Safety Report 12924561 (Version 2)
Quarter: 2016Q4

REPORT INFORMATION
  Report Type: Spontaneous
  Country: IT (occurrence: IT)
  Receive Date: 20161109
  Receipt Date: 20161130
  Transmission Date: 20170207
  Serious: Yes (Other)
  Sender: FDA-Public Use
  Company Number: PHHY2016IT151888

PATIENT
  Sex: Male

DRUGS (4)
  1. DIAZEPAM. [Suspect]
     Active Substance: DIAZEPAM
     Indication: PRODUCT USED FOR UNKNOWN INDICATION
     Dosage: UNK
     Route: 048
     Dates: start: 20160325, end: 20160325
  2. BISOPROLOL HCT [Suspect]
     Active Substance: BISOPROLOL FUMARATE\HYDROCHLOROTHIAZIDE
     Indication: DRUG ABUSE
     Dosage: UNK
     Route: 048
     Dates: start: 20160325, end: 20160325
  3. VALDORM [Suspect]
     Active Substance: VALERIAN
     Indication: DRUG ABUSE
     Dosage: UNK
     Route: 048
     Dates: start: 20160325, end: 20160325
  4. VALIUM [Suspect]
     Active Substance: DIAZEPAM
     Indication: DRUG ABUSE
     Dosage: UNK
     Route: 048
     Dates: start: 20160325, end: 20160325

REACTIONS (2)
  - Psychomotor hyperactivity [Recovered/Resolved]
  - Drug abuse [Recovered/Resolved]
